FAERS Safety Report 24083982 (Version 1)
Quarter: 2024Q3

REPORT INFORMATION
  Report Type: Spontaneous
  Country: US (occurrence: US)
  Receive Date: 20240712
  Receipt Date: 20240712
  Transmission Date: 20241017
  Serious: No
  Sender: IPSEN
  Company Number: US-IPSEN Group, Research and Development-2024-12588

PATIENT
  Sex: Female
  Weight: 5.39 kg

DRUGS (1)
  1. BYLVAY [Suspect]
     Active Substance: ODEVIXIBAT
     Indication: Biliary obstruction
     Route: 048

REACTIONS (3)
  - Pruritus [Unknown]
  - Product preparation issue [Unknown]
  - Drug ineffective [Unknown]
